FAERS Safety Report 8904578 (Version 1)
Quarter: 2012Q4

REPORT INFORMATION
  Report Type: 
  Country: CA (occurrence: CA)
  Receive Date: 20121113
  Receipt Date: 20121113
  Transmission Date: 20130627
  Serious: Yes (Other)
  Sender: FDA-Public Use
  Company Number: PHBS2001CA10428

PATIENT
  Age: 62 Year
  Sex: Female

DRUGS (1)
  1. EXELON [Suspect]
     Dosage: 1.5 mg, BID
     Route: 048
     Dates: start: 20010413

REACTIONS (2)
  - Increased appetite [Recovered/Resolved]
  - Weight increased [Recovered/Resolved]
